FAERS Safety Report 5287536-9 (Version None)
Quarter: 2007Q1

REPORT INFORMATION
  Report Type: 
  Country: None (occurrence: None)
  Receive Date: 20070116
  Receipt Date: 20060928
  Transmission Date: 20070707
  Serious: No
  Sender: FDA-Public Use
  Company Number: 2006SP003458

PATIENT
  Age: 31 Year
  Sex: Male
  Weight: 81.6475 kg

DRUGS (3)
  1. LUNESTA [Suspect]
     Indication: INSOMNIA
     Dosage: 2 MG;ORAL
     Route: 048
     Dates: start: 20060927
  2. ZOLOFT [Concomitant]
  3. TEMAZEPAM [Concomitant]

REACTIONS (4)
  - DYSGEUSIA [None]
  - SWOLLEN TONGUE [None]
  - TONGUE BLACK HAIRY [None]
  - TONSILLITIS [None]
